FAERS Safety Report 12933639 (Version 1)
Quarter: 2016Q4

REPORT INFORMATION
  Report Type: Spontaneous
  Country: US (occurrence: US)
  Receive Date: 20161111
  Receipt Date: 20161111
  Transmission Date: 20170207
  Serious: Yes (Hospitalization)
  Sender: FDA-Public Use
  Company Number: US-FRESENIUS MEDICAL CARE RENAL THERAPIES GROUP-FMC-1609-001133

PATIENT
  Age: 82 Year
  Sex: Female
  Weight: 102 kg

DRUGS (3)
  1. DELFLEX [Suspect]
     Active Substance: CALCIUM CHLORIDE\DEXTROSE\MAGNESIUM CHLORIDE\SODIUM CHLORIDE\SODIUM LACTATE
     Indication: END STAGE RENAL DISEASE
     Route: 033
  2. ASPIRIN. [Concomitant]
     Active Substance: ASPIRIN
  3. DILTIAZEM. [Concomitant]
     Active Substance: DILTIAZEM

REACTIONS (2)
  - Fluid overload [Recovering/Resolving]
  - Peritonitis bacterial [Recovered/Resolved]

NARRATIVE: CASE EVENT DATE: 20160922
